FAERS Safety Report 6336123-X (Version None)
Quarter: 2009Q3

REPORT INFORMATION
  Report Type: 
  Country: None (occurrence: None)
  Receive Date: 20090901
  Receipt Date: 20090828
  Transmission Date: 20100115
  Serious: Yes (Other)
  Sender: FDA-Public Use
  Company Number: US-TEVA-207553USA

PATIENT
  Sex: Female

DRUGS (1)
  1. OXAZEPAM CAPSULES USP, 10MG [Suspect]
     Indication: MENIERE'S DISEASE
     Route: 048

REACTIONS (1)
  - DEAFNESS [None]
